FAERS Safety Report 5273572-5 (Version None)
Quarter: 2007Q1

REPORT INFORMATION
  Report Type: 
  Country: None (occurrence: None)
  Receive Date: 20070321
  Receipt Date: 20070321
  Transmission Date: 20070707
  Serious: Yes (Hospitalization)
  Sender: FDA-Public Use
  Company Number: None

PATIENT
  Age: 58 Year
  Sex: Female

DRUGS (8)
  1. WARFARIN SODIUM [Suspect]
     Indication: ANTICOAGULANT THERAPY
     Dosage: 5MG DAILY PO
     Route: 048
     Dates: start: 20070228, end: 20070312
  2. WARFARIN SODIUM [Suspect]
     Indication: THROMBOSIS
     Dosage: 5MG DAILY PO
     Route: 048
     Dates: start: 20070228, end: 20070312
  3. DURAGESIC-100 [Concomitant]
  4. IMITREX [Concomitant]
  5. AMBIEN [Concomitant]
  6. PERCOCET [Concomitant]
  7. LORAZEPAM [Concomitant]
  8. ZELNORM [Concomitant]

REACTIONS (2)
  - GINGIVAL BLEEDING [None]
  - INTERNATIONAL NORMALISED RATIO INCREASED [None]
